FAERS Safety Report 7206774-9 (Version None)
Quarter: 2010Q4

REPORT INFORMATION
  Report Type: 
  Country: None (occurrence: None)
  Receive Date: 20101221
  Receipt Date: 20101209
  Transmission Date: 20110411
  Serious: Yes (Other)
  Sender: FDA-Public Use
  Company Number: 2010-4305

PATIENT
  Sex: Female

DRUGS (13)
  1. APO-GO AMPOULES (APOMORPHINE HYDROCHLORIDE) [Suspect]
     Indication: PARKINSON'S DISEASE
     Dosage: 1.28 ML/HR FOR 12 HOURS/DAY (1.28 MG/HR FOR 12 HOURS/DAY), SUBCUTANEOUS
     Route: 058
     Dates: start: 20100501
  2. CITALOPRAM [Concomitant]
  3. DOMPERIDONE [Concomitant]
  4. OMEPRAZOLE [Concomitant]
  5. SINEMET [Concomitant]
  6. SINEMET [Concomitant]
  7. QUETIAPINE [Concomitant]
  8. CELECOXIB [Concomitant]
  9. PRAMIPEXOLE [Concomitant]
  10. CIPRAMIL (CITALOPRAM HYDROBROMIDE) [Concomitant]
  11. CALOREEN (DEXTRIN) [Concomitant]
  12. CALOGEN DIETARY (CALCITONIN, SALMON) [Concomitant]
  13. CALCICHEW-D3 FORTE (LEKOVIT CA) [Concomitant]

REACTIONS (7)
  - DEVICE MALFUNCTION [None]
  - INJECTION SITE ERYTHEMA [None]
  - INJECTION SITE NODULE [None]
  - INJECTION SITE SWELLING [None]
  - INJURY ASSOCIATED WITH DEVICE [None]
  - MALABSORPTION FROM INJECTION SITE [None]
  - MALAISE [None]
